FAERS Safety Report 15918763 (Version 4)
Quarter: 2019Q2

REPORT INFORMATION
  Report Type: Spontaneous
  Country: US (occurrence: US)
  Receive Date: 20190205
  Receipt Date: 20190514
  Transmission Date: 20190711
  Serious: Yes (Hospitalization, Other)
  Sender: FDA-Public Use
  Company Number: US-PFIZER INC-2018231406

PATIENT
  Age: 85 Year
  Sex: Female
  Weight: 49.9 kg

DRUGS (11)
  1. LYRICA [Suspect]
     Active Substance: PREGABALIN
     Indication: SLEEP DISORDER
  2. LYRICA [Suspect]
     Active Substance: PREGABALIN
     Indication: NEUROPATHY PERIPHERAL
     Dosage: 200 MG, 2X/DAY
     Route: 048
  3. LYRICA [Suspect]
     Active Substance: PREGABALIN
     Indication: BURNING SENSATION
  4. MOBIC [Concomitant]
     Active Substance: MELOXICAM
     Dosage: 15 MG, UNK
     Dates: end: 20190422
  5. LYRICA [Suspect]
     Active Substance: PREGABALIN
     Indication: FIBROMYALGIA
  6. MOBIC [Concomitant]
     Active Substance: MELOXICAM
     Dosage: 50 MG, UNK
  7. VOLTAREN [DICLOFENAC] [Concomitant]
     Active Substance: DICLOFENAC SODIUM
     Dosage: UNK
     Route: 061
     Dates: start: 2014
  8. LYRICA [Suspect]
     Active Substance: PREGABALIN
     Indication: SCOLIOSIS
  9. ESTRADIOL [ESTRADIOL VALERATE] [Concomitant]
     Dosage: 0.5 MG, UNK
  10. TRAMADOL. [Concomitant]
     Active Substance: TRAMADOL
     Indication: PAIN
     Dosage: 50 MG, UNK
     Dates: start: 2014
  11. LYRICA [Suspect]
     Active Substance: PREGABALIN
     Indication: PAIN

REACTIONS (11)
  - Scoliosis [Not Recovered/Not Resolved]
  - Malaise [Unknown]
  - Nausea [Unknown]
  - Hypoacusis [Not Recovered/Not Resolved]
  - Withdrawal syndrome [Recovered/Resolved]
  - Drug dependence [Unknown]
  - Spinal osteoarthritis [Not Recovered/Not Resolved]
  - Vomiting [Recovered/Resolved]
  - Visual impairment [Unknown]
  - Body height decreased [Unknown]
  - Haematemesis [Recovered/Resolved]

NARRATIVE: CASE EVENT DATE: 20181231
